FAERS Safety Report 6036518-8 (Version None)
Quarter: 2009Q1

REPORT INFORMATION
  Report Type: 
  Country: None (occurrence: None)
  Receive Date: 20090114
  Receipt Date: 20090105
  Transmission Date: 20090719
  Serious: Yes (Hospitalization, Other)
  Sender: FDA-Public Use
  Company Number: JP-ASTRAZENECA-2008SE05514

PATIENT
  Age: 29140 Day
  Sex: Male

DRUGS (4)
  1. KENZEN 8 MG [Suspect]
     Indication: HYPERTENSION
     Route: 048
     Dates: start: 20081020
  2. INSULATARD [Concomitant]
     Indication: TYPE 1 DIABETES MELLITUS
     Route: 042
  3. MONO-TILDIEM-SLOW-RELEASE [Concomitant]
     Indication: HYPERTENSION
     Route: 048
     Dates: start: 20080110
  4. BUFLOMEDIL [Concomitant]
     Indication: DRUG USE FOR UNKNOWN INDICATION
     Route: 048
     Dates: start: 20080920

REACTIONS (1)
  - HYPOGLYCAEMIC COMA [None]
